FAERS Safety Report 11009861 (Version 2)
Quarter: 2015Q2

REPORT INFORMATION
  Report Type: Report from Study
  Country: GR (occurrence: GR)
  Receive Date: 20150410
  Receipt Date: 20150504
  Transmission Date: 20150821
  Serious: Yes (Death)
  Sender: FDA-Public Use
  Company Number: GR-SA-2015SA044018

PATIENT
  Age: 88 Year
  Sex: Male
  Weight: 60 kg

DRUGS (3)
  1. ZOMARIST [Concomitant]
     Active Substance: VILDAGLIPTIN
     Dosage: START DATE: 2-3 YEARS
  2. SOLOSA [Concomitant]
     Active Substance: GLIMEPIRIDE
     Dosage: START DATE: 2-3 YEARS
  3. LANTUS [Suspect]
     Active Substance: INSULIN GLARGINE
     Route: 065
     Dates: start: 20150305, end: 20150306

REACTIONS (2)
  - Dysuria [Unknown]
  - Syncope [Fatal]

NARRATIVE: CASE EVENT DATE: 20150305
